FAERS Safety Report 8816712 (Version 1)
Quarter: 2012Q4

REPORT INFORMATION
  Report Type: Spontaneous
  Country: US (occurrence: None)
  Receive Date: 20121001
  Receipt Date: 20121001
  Transmission Date: 20130627
  Serious: Yes (Life-Threatening, Other)
  Sender: FDA-Public Use
  Company Number: 1433433

PATIENT
  Age: 63 Year
  Sex: Female

DRUGS (5)
  1. VINCRISTINE SULFATE [Suspect]
     Indication: PERIPHERAL T-CELL LYMPHOMA UNSPECIFIED STAGE IV
  2. CYCLOPHOSPHAMIDE [Suspect]
  3. BEVACIZUMAB [Suspect]
  4. DOXORUBICIN [Suspect]
  5. PREDNISOLONE [Suspect]

REACTIONS (3)
  - Arrhythmia [None]
  - Left ventricular dysfunction [None]
  - Cardiac failure congestive [None]
